FAERS Safety Report 8296663-3 (Version None)
Quarter: 2012Q2

REPORT INFORMATION
  Report Type: 
  Country: None (occurrence: None)
  Receive Date: 20120418
  Receipt Date: 20120418
  Transmission Date: 20120825
  Serious: Yes (Life-Threatening)
  Sender: FDA-Public Use
  Company Number: None

PATIENT
  Age: 81 Year
  Sex: Female
  Weight: 51.709 kg

DRUGS (1)
  1. TEKTURNA HCT [Suspect]
     Indication: HYPERTENSION
     Dosage: ONE TABLET
     Route: 048
     Dates: start: 20110301, end: 20120417

REACTIONS (2)
  - BLOOD PRESSURE INCREASED [None]
  - DRUG LEVEL DECREASED [None]
